FAERS Safety Report 10755951 (Version 3)
Quarter: 2015Q3

REPORT INFORMATION
  Report Type: Report from Study
  Country: AU (occurrence: AU)
  Receive Date: 20150202
  Receipt Date: 20150803
  Transmission Date: 20151125
  Serious: Yes (Hospitalization)
  Sender: FDA-Public Use
  Company Number: AU-MERCK-1501AUS010944

PATIENT
  Age: 53 Year
  Sex: Male

DRUGS (1)
  1. PEMBROLIZUMAB. [Suspect]
     Active Substance: PEMBROLIZUMAB
     Indication: BLADDER TRANSITIONAL CELL CARCINOMA
     Dosage: UNK
     Route: 042

REACTIONS (1)
  - Pericardial effusion [Unknown]
